FAERS Safety Report 25484602 (Version 1)
Quarter: 2025Q2

REPORT INFORMATION
  Report Type: Spontaneous
  Country: US (occurrence: None)
  Receive Date: 20250626
  Receipt Date: 20250626
  Transmission Date: 20250717
  Serious: Yes (Disabling)
  Sender: FDA-CTU
  Company Number: None

PATIENT
  Age: 35 Year
  Sex: Female
  Weight: 60.75 kg

DRUGS (4)
  1. SKYRIZI [Suspect]
     Active Substance: RISANKIZUMAB-RZAA
     Indication: Crohn^s disease
     Dates: start: 20230718
  2. PRAZOSIN [Concomitant]
     Active Substance: PRAZOSIN
  3. TRETINOIN [Concomitant]
     Active Substance: TRETINOIN
  4. MAGNESIUM GLYCINATE [Concomitant]
     Active Substance: MAGNESIUM GLYCINATE

REACTIONS (4)
  - Sleep disorder [None]
  - Abnormal dreams [None]
  - Fatigue [None]
  - Middle insomnia [None]
